FAERS Safety Report 7461914-1 (Version None)
Quarter: 2011Q2

REPORT INFORMATION
  Report Type: 
  Country: None (occurrence: None)
  Receive Date: 20110506
  Receipt Date: 20110425
  Transmission Date: 20111010
  Serious: No
  Sender: FDA-Public Use
  Company Number: US-BAYER-2011-035797

PATIENT
  Sex: Female

DRUGS (1)
  1. MIRENA [Suspect]
     Dosage: UNK

REACTIONS (9)
  - NAUSEA [None]
  - HAEMORRHOIDS [None]
  - BLOOD PRESSURE INCREASED [None]
  - ECZEMA [None]
  - LIBIDO DECREASED [None]
  - VOMITING [None]
  - WEIGHT INCREASED [None]
  - DIARRHOEA [None]
  - PREGNANCY [None]
